FAERS Safety Report 4314801-1 (Version None)
Quarter: 2004Q1

REPORT INFORMATION
  Report Type: 
  Country: None (occurrence: None)
  Receive Date: 20040308
  Receipt Date: 20040224
  Transmission Date: 20041129
  Serious: Yes (Disabling)
  Sender: FDA-Public Use
  Company Number: 2003-BP-04138BP

PATIENT
  Age: 72 Year
  Sex: Male

DRUGS (6)
  1. MICARDIS [Suspect]
     Indication: CEREBROVASCULAR ACCIDENT PROPHYLAXIS
     Route: 048
     Dates: start: 20030512
  2. MICARDIS [Suspect]
     Indication: MYOCARDIAL INFARCTION
     Route: 048
     Dates: start: 20030512
  3. MICARDIS [Suspect]
     Indication: PROPHYLAXIS
     Route: 048
     Dates: start: 20030512
  4. MICARDIS [Suspect]
     Indication: CEREBROVASCULAR ACCIDENT PROPHYLAXIS
     Route: 048
     Dates: start: 20030512
  5. MICARDIS [Suspect]
     Indication: MYOCARDIAL INFARCTION
     Route: 048
     Dates: start: 20030512
  6. MICARDIS [Suspect]
     Indication: PROPHYLAXIS
     Route: 048
     Dates: start: 20030512

REACTIONS (1)
  - IIIRD NERVE PARALYSIS [None]
